FAERS Safety Report 14663252 (Version 1)
Quarter: 2018Q1

REPORT INFORMATION
  Report Type: Other
  Country: DE (occurrence: DE)
  Receive Date: 20180321
  Receipt Date: 20180321
  Transmission Date: 20180509
  Serious: Yes (Death, Life-Threatening, Hospitalization, Other)
  Sender: FDA-Public Use
  Company Number: DE-MACLEODS PHARMACEUTICALS US LTD-MAC2018011497

PATIENT

DRUGS (7)
  1. SACUBITRIL [Suspect]
     Active Substance: SACUBITRIL
     Indication: PRODUCT USED FOR UNKNOWN INDICATION
     Dosage: 50 MG (24/26 MG),
     Route: 048
     Dates: start: 20170213, end: 20170220
  2. IVABRADINE [Concomitant]
     Active Substance: IVABRADINE
     Indication: CARDIAC FAILURE CHRONIC
     Dosage: 5 MG, QD
     Route: 048
  3. TORASEMIDE [Concomitant]
     Active Substance: TORSEMIDE
     Indication: CARDIAC FAILURE
     Dosage: UNK
     Route: 065
  4. VALSARTAN. [Suspect]
     Active Substance: VALSARTAN
     Indication: CARDIAC FAILURE CHRONIC
     Dosage: 50 MG, QD,(24/26 MG), BID
     Route: 048
     Dates: start: 20170112, end: 20170206
  5. SACUBITRIL [Suspect]
     Active Substance: SACUBITRIL
     Dosage: 100 MG, QD,(49/51 MG)
     Route: 048
     Dates: start: 20170206, end: 20170213
  6. VALSARTAN. [Suspect]
     Active Substance: VALSARTAN
     Indication: PRODUCT USED FOR UNKNOWN INDICATION
     Dosage: 0.5 DF, QD,100 MG (49/51 MG), BID
     Route: 048
     Dates: start: 20170220
  7. TORASEMIDE [Concomitant]
     Active Substance: TORSEMIDE
     Indication: CARDIAC FAILURE CHRONIC
     Dosage: 10 MG, QD
     Route: 048
     Dates: start: 20131127

REACTIONS (12)
  - Tachycardia [Recovered/Resolved]
  - Cardiac failure [Fatal]
  - Mitral valve incompetence [Not Recovered/Not Resolved]
  - Ileus [Recovered/Resolved]
  - Pneumonia [Recovered/Resolved]
  - Drug prescribing error [Unknown]
  - Hypotension [Fatal]
  - Fear [Fatal]
  - Pleural effusion [Recovered/Resolved]
  - Gout [Unknown]
  - Tricuspid valve incompetence [Not Recovered/Not Resolved]
  - Wrong technique in product usage process [Unknown]

NARRATIVE: CASE EVENT DATE: 20170313
